FAERS Safety Report 19661132 (Version 4)
Quarter: 2021Q4

REPORT INFORMATION
  Report Type: Spontaneous
  Country: FR (occurrence: FR)
  Receive Date: 20210805
  Receipt Date: 20211015
  Transmission Date: 20220303
  Serious: Yes (Hospitalization, Other)
  Sender: FDA-Public Use
  Company Number: FR-MERCK HEALTHCARE KGAA-9254142

PATIENT
  Age: 67 Year
  Sex: Female

DRUGS (10)
  1. LEVOTHYROXINE SODIUM [Suspect]
     Active Substance: LEVOTHYROXINE SODIUM
     Indication: Autoimmune thyroiditis
     Dosage: OLD FORMULATION
     Dates: start: 2002
  2. LEVOTHYROXINE SODIUM [Suspect]
     Active Substance: LEVOTHYROXINE SODIUM
     Dosage: LEVOTHYROX 50 (NF)
  3. LEVOTHYROXINE SODIUM [Suspect]
     Active Substance: LEVOTHYROXINE SODIUM
     Dosage: LEVOTHYROX NF GRADUALLY INCREASING TO LEVOTHYROX 100 FOR 5 DAYS IN A WEEK AND 50 ON SAT
  4. LEVOTHYROXINE SODIUM [Suspect]
     Active Substance: LEVOTHYROXINE SODIUM
  5. LEVOTHYROXINE SODIUM [Suspect]
     Active Substance: LEVOTHYROXINE SODIUM
     Dosage: OLD FORMULATION DOSE UNSPECIFIED RESTARTED
  6. XANAX [Concomitant]
     Active Substance: ALPRAZOLAM
     Indication: Pain
  7. INDAPAMIDE\PERINDOPRIL ARGININE [Concomitant]
     Active Substance: INDAPAMIDE\PERINDOPRIL ARGININE
     Indication: Hypertension
  8. DAFALGAN [Concomitant]
     Active Substance: ACETAMINOPHEN
     Indication: Arthralgia
  9. RIVOTRIL [Concomitant]
     Active Substance: CLONAZEPAM
     Indication: Arthralgia
  10. ZOLPIDEM TARTRATE [Concomitant]
     Active Substance: ZOLPIDEM TARTRATE
     Indication: Arthralgia
     Dosage: 1/2 TABLET

REACTIONS (6)
  - Loss of consciousness [Recovering/Resolving]
  - Palpitations [Recovered/Resolved]
  - Hypertension [Recovering/Resolving]
  - Discomfort [Recovered/Resolved]
  - Malaise [Recovered/Resolved]
  - Headache [Recovering/Resolving]

NARRATIVE: CASE EVENT DATE: 20170101
